FAERS Safety Report 18533974 (Version 1)
Quarter: 2020Q4

REPORT INFORMATION
  Report Type: Spontaneous
  Country: SE (occurrence: SE)
  Receive Date: 20201123
  Receipt Date: 20201123
  Transmission Date: 20210114
  Serious: Yes (Death, Other)
  Sender: FDA-Public Use
  Company Number: SE-SAOL THERAPEUTICS-2020SAO00487

PATIENT
  Age: 14 Year
  Sex: Male
  Weight: 40 kg

DRUGS (5)
  1. LAMICTAL [Concomitant]
     Active Substance: LAMOTRIGINE
     Dosage: 150 MG, 1X/DAY IN THE MORNING
  2. LIORESAL [Suspect]
     Active Substance: BACLOFEN
     Dosage: 985.7 ?G, \DAY
     Route: 037
  3. LAMICTAL [Concomitant]
     Active Substance: LAMOTRIGINE
     Dosage: 125 MG, 1X/DAY IN THE EVENING
  4. MOVICOL [Concomitant]
     Active Substance: POLYETHYLENE GLYCOL 3350\POTASSIUM CHLORIDE\SODIUM BICARBONATE\SODIUM CHLORIDE
     Dosage: 4 BAGS, \DAY
  5. NEXIUM [Concomitant]
     Active Substance: ESOMEPRAZOLE MAGNESIUM
     Dosage: 20 MG, \DAY

REACTIONS (3)
  - Cardiac failure [Unknown]
  - Death [Fatal]
  - Wheezing [Unknown]

NARRATIVE: CASE EVENT DATE: 20201020
